FAERS Safety Report 21486402 (Version 1)
Quarter: 2022Q4

REPORT INFORMATION
  Report Type: Spontaneous
  Country: US (occurrence: US)
  Receive Date: 20221020
  Receipt Date: 20221020
  Transmission Date: 20230113
  Serious: Yes (Hospitalization)
  Sender: FDA-Public Use
  Company Number: US-MYLANLABS-2022M1115168

PATIENT
  Age: 44 Year
  Sex: Female

DRUGS (2)
  1. TEMOZOLOMIDE [Suspect]
     Active Substance: TEMOZOLOMIDE
     Indication: Glioblastoma
     Dosage: UNK
     Route: 065
  2. GLIADEL [Suspect]
     Active Substance: CARMUSTINE
     Indication: Glioblastoma
     Dosage: UNK, WAFER
     Route: 065

REACTIONS (1)
  - Drug ineffective [Unknown]
